FAERS Safety Report 7961302-5 (Version None)
Quarter: 2011Q4

REPORT INFORMATION
  Report Type: 
  Country: None (occurrence: None)
  Receive Date: 20111207
  Receipt Date: 20111122
  Transmission Date: 20120403
  Serious: Yes (Other)
  Sender: FDA-Public Use
  Company Number: PHHY2011US102717

PATIENT
  Age: 17 Year
  Sex: Female

DRUGS (6)
  1. CHORIONIC GONADTROPIN [Concomitant]
  2. GNRH ANTAGONIST [Concomitant]
  3. IMATINIB MESYLATE [Suspect]
     Indication: CHRONIC MYELOID LEUKAEMIA
     Dosage: 400 MG, DAILY
  4. FOLLICLE-STIMULATING HORMONE, HUMAN [Concomitant]
     Dosage: 150 IU, UNK
  5. MENOPUR [Concomitant]
  6. IMATINIB MESYLATE [Suspect]
     Dosage: 400 MG, BID

REACTIONS (8)
  - OVARIAN FAILURE [None]
  - CHRONIC MYELOID LEUKAEMIA [None]
  - NEUTROPENIA [None]
  - ABDOMINAL PAIN [None]
  - OESTRADIOL ABNORMAL [None]
  - FATIGUE [None]
  - NEOPLASM MALIGNANT [None]
  - GASTRITIS [None]
